APPROVED DRUG PRODUCT: XYOSTED (AUTOINJECTOR)
Active Ingredient: TESTOSTERONE ENANTHATE
Strength: 100MG/0.5ML (100MG/0.5ML)
Dosage Form/Route: SOLUTION;SUBCUTANEOUS
Application: N209863 | Product #003
Applicant: ANTARES PHARMA INC
Approved: Sep 28, 2018 | RLD: Yes | RS: Yes | Type: RX

PATENTS:
Patent 9950125 | Expires: Sep 4, 2036
Patent 10912782 | Expires: Feb 19, 2035
Patent 11844804 | Expires: Jun 4, 2033
Patent 10821072 | Expires: Jun 4, 2033
Patent 10238662 | Expires: Feb 19, 2035
Patent 11160751 | Expires: Oct 7, 2034
Patent 11446440 | Expires: Aug 21, 2031
Patent 10646495 | Expires: Aug 30, 2038
Patent 8021335 | Expires: Oct 4, 2026
Patent 9629959 | Expires: Jan 24, 2026
Patent 10905827 | Expires: Aug 21, 2031
Patent 11191908 | Expires: Oct 18, 2035
Patent 11446441 | Expires: Jan 24, 2026
Patent 11497753 | Expires: Mar 19, 2030
Patent 9180259 | Expires: Jan 24, 2026
Patent 10881798 | Expires: Feb 11, 2034
Patent 11813435 | Expires: Feb 25, 2035
Patent 8562564 | Expires: Jan 24, 2026
Patent 10478560 | Expires: Jan 24, 2026
Patent 10279131 | Expires: Jul 31, 2031
Patent 9533102 | Expires: Jan 24, 2026
Patent 10357609 | Expires: Aug 21, 2031
Patent 9744302 | Expires: Nov 19, 2035